FAERS Safety Report 19130811 (Version 1)
Quarter: 2021Q2

REPORT INFORMATION
  Report Type: Report from Study
  Country: US (occurrence: US)
  Receive Date: 20210413
  Receipt Date: 20210413
  Transmission Date: 20210717
  Serious: Yes (Other)
  Sender: FDA-Public Use
  Company Number: US-JAZZ-2021-US-006233

PATIENT
  Age: 41 Year
  Sex: Female

DRUGS (8)
  1. SPIRONOLACTONE. [Concomitant]
     Active Substance: SPIRONOLACTONE
  2. XYREM [Suspect]
     Active Substance: SODIUM OXYBATE
     Dosage: DOSE ADJUSTMENT
     Route: 048
     Dates: start: 201805, end: 201805
  3. XYREM [Suspect]
     Active Substance: SODIUM OXYBATE
     Dosage: 4.5 GRAM, BID
     Route: 048
     Dates: start: 201805
  4. PROGESTERONE. [Concomitant]
     Active Substance: PROGESTERONE
  5. IRON [Concomitant]
     Active Substance: IRON
  6. NORCO [Concomitant]
     Active Substance: ACETAMINOPHEN\HYDROCODONE BITARTRATE
  7. CLARITIN [Concomitant]
     Active Substance: LORATADINE
  8. XYREM [Suspect]
     Active Substance: SODIUM OXYBATE
     Indication: NARCOLEPSY
     Dosage: 2.25 GRAM, BID
     Route: 048
     Dates: start: 201805, end: 201805

REACTIONS (6)
  - Spinal column injury [Unknown]
  - Intervertebral disc protrusion [Unknown]
  - Anaemia [Unknown]
  - Surgery [Unknown]
  - Gastrooesophageal reflux disease [Unknown]
  - Burning sensation [Unknown]

NARRATIVE: CASE EVENT DATE: 20210325
